FAERS Safety Report 18600107 (Version 1)
Quarter: 2020Q4

REPORT INFORMATION
  Report Type: Spontaneous
  Country: IT (occurrence: IT)
  Receive Date: 20201210
  Receipt Date: 20201210
  Transmission Date: 20210114
  Serious: Yes (Hospitalization)
  Sender: FDA-Public Use
  Company Number: IT-MYLANLABS-2020M1099690

PATIENT
  Age: 75 Year
  Sex: Female

DRUGS (2)
  1. PAROXETINE. [Suspect]
     Active Substance: PAROXETINE
     Indication: DEPRESSION
     Dosage: 400 MILLIGRAM, TOTAL
     Route: 048
     Dates: start: 20200113, end: 20200113
  2. RIVOTRIL [Suspect]
     Active Substance: CLONAZEPAM
     Indication: ANXIETY
     Dosage: 25 MILLIGRAM, TOTAL
     Route: 048

REACTIONS (1)
  - Bradyphrenia [Unknown]

NARRATIVE: CASE EVENT DATE: 20200113
